FAERS Safety Report 17272206 (Version 1)
Quarter: 2020Q1

REPORT INFORMATION
  Report Type: Other
  Country: GB (occurrence: GB)
  Receive Date: 20200115
  Receipt Date: 20200115
  Transmission Date: 20200409
  Serious: Yes (Hospitalization)
  Sender: FDA-Public Use
  Company Number: GB-SUNRISE PHARMACEUTICAL, INC.-2079042

PATIENT
  Age: 78 Year
  Sex: Male

DRUGS (1)
  1. FOLIC ACID. [Suspect]
     Active Substance: FOLIC ACID
     Indication: PRODUCT USED FOR UNKNOWN INDICATION
     Route: 048

REACTIONS (3)
  - Peripheral artery aneurysm [Unknown]
  - Vascular insufficiency [Unknown]
  - Anaphylactic reaction [Unknown]
